FAERS Safety Report 8955250 (Version 1)
Quarter: 2012Q4

REPORT INFORMATION
  Report Type: 
  Country: US (occurrence: US)
  Receive Date: 20121210
  Receipt Date: 20121210
  Transmission Date: 20130627
  Serious: No
  Sender: FDA-Public Use
  Company Number: US-PFIZER INC-2012310113

PATIENT
  Sex: Female

DRUGS (2)
  1. CHANTIX [Suspect]
     Indication: SMOKING CESSATION THERAPY
     Dosage: 0.5 mg, 1x/day
     Route: 048
     Dates: start: 20121201
  2. TRICOR [Concomitant]
     Indication: HIGH CHOLESTEROL
     Dosage: UNK
     Route: 048

REACTIONS (1)
  - Headache [Not Recovered/Not Resolved]
